FAERS Safety Report 7051557-6 (Version None)
Quarter: 2010Q4

REPORT INFORMATION
  Report Type: 
  Country: None (occurrence: None)
  Receive Date: 20101019
  Receipt Date: 20101018
  Transmission Date: 20110411
  Serious: Yes (Life-Threatening)
  Sender: FDA-Public Use
  Company Number: DE-SANOFI-AVENTIS-2010SA063148

PATIENT
  Age: 58 Year
  Sex: Male
  Weight: 118 kg

DRUGS (4)
  1. ARAVA [Suspect]
     Route: 048
     Dates: start: 20071101
  2. MONOCLONAL ANTIBODY 17-1A [Suspect]
     Route: 065
     Dates: start: 20090501
  3. PREDNISOLON [Suspect]
     Route: 048
     Dates: start: 20070601
  4. DICLOFENAC RESINATE [Concomitant]
     Route: 048

REACTIONS (2)
  - MULTI-ORGAN FAILURE [None]
  - SEPSIS [None]
